FAERS Safety Report 25990195 (Version 1)
Quarter: 2025Q4

REPORT INFORMATION
  Report Type: Report from Study
  Country: MY (occurrence: MY)
  Receive Date: 20251103
  Receipt Date: 20251103
  Transmission Date: 20260118
  Serious: Yes (Death)
  Sender: MYLAN
  Company Number: MY-MYLANLABS-2025M1022628

PATIENT
  Sex: Male

DRUGS (1)
  1. SILDENAFIL [Suspect]
     Active Substance: SILDENAFIL
     Indication: Pulmonary arterial hypertension
     Dosage: 20 MILLIGRAM, TID
     Dates: start: 20040421, end: 20250305

REACTIONS (3)
  - Hypertrophy [Fatal]
  - Cardiomyopathy [Fatal]
  - Heart disease congenital [Fatal]
